FAERS Safety Report 22184824 (Version 1)
Quarter: 2023Q2

REPORT INFORMATION
  Report Type: Report from Study
  Country: US (occurrence: US)
  Receive Date: 20230407
  Receipt Date: 20230407
  Transmission Date: 20230722
  Serious: Yes (Other)
  Sender: FDA-Public Use
  Company Number: US-AUROBINDO-AUR-APL-2021-047438

PATIENT
  Age: 39 Year
  Sex: Female

DRUGS (2)
  1. KETAMINE HYDROCHLORIDE [Suspect]
     Active Substance: KETAMINE HYDROCHLORIDE
     Indication: Depression
     Dosage: 0.5 MILLIGRAM/KILOGRAM
     Route: 065
  2. KETAMINE HYDROCHLORIDE [Suspect]
     Active Substance: KETAMINE HYDROCHLORIDE
     Dosage: 0.7 MILLIGRAM/KILOGRAM
     Route: 065

REACTIONS (2)
  - Lethargy [Unknown]
  - Product use in unapproved indication [Unknown]
